FAERS Safety Report 8259147-4 (Version None)
Quarter: 2012Q2

REPORT INFORMATION
  Report Type: 
  Country: None (occurrence: None)
  Receive Date: 20120404
  Receipt Date: 20120320
  Transmission Date: 20120825
  Serious: Yes (Other)
  Sender: FDA-Public Use
  Company Number: CHPA2012US005441

PATIENT
  Age: 55 Year
  Sex: Female

DRUGS (7)
  1. HYDROCODONE BITARTRATE [Suspect]
     Indication: PAIN
     Dosage: 150 MG, QID
     Route: 048
     Dates: end: 20120101
  2. BUPROPION HCL [Suspect]
     Indication: PAIN
     Dosage: 150 MG, TID
     Route: 048
  3. EXCEDRIN EXTRA STRENGTH TABLETS [Suspect]
     Dosage: 1 DF, TID
     Route: 048
  4. MOBIC [Suspect]
     Indication: PAIN
     Dosage: UNK, UNK
     Route: 048
  5. FENTANYL [Suspect]
     Indication: PAIN
     Dosage: 125 MG, UNK
     Route: 062
  6. EXCEDRIN EXTRA STRENGTH TABLETS [Suspect]
     Indication: PAIN
     Dosage: 2 DF, TID
     Route: 048
     Dates: start: 19740101, end: 20120101
  7. TRAMADOL HCL [Suspect]
     Indication: PAIN
     Dosage: 150 MG, PRN
     Route: 048
     Dates: start: 20080401, end: 20120101

REACTIONS (7)
  - UNDERDOSE [None]
  - PLEURAL EFFUSION [None]
  - MENTAL IMPAIRMENT [None]
  - ARTHRITIS [None]
  - INCORRECT DRUG ADMINISTRATION DURATION [None]
  - MUSCLE SPASMS [None]
  - BALANCE DISORDER [None]
